FAERS Safety Report 4890460-4 (Version None)
Quarter: 2005Q4

REPORT INFORMATION
  Report Type: 
  Country: None (occurrence: None)
  Receive Date: 20051216
  Receipt Date: 20050922
  Transmission Date: 20060501
  Serious: No
  Sender: FDA-Public Use
  Company Number: BDI-007534

PATIENT
  Age: 64 Year
  Sex: Male
  Weight: 82 kg

DRUGS (2)
  1. MULTIHANCE [Suspect]
     Indication: MASS
     Dosage: 20 ML ONCE IV
     Route: 042
     Dates: start: 20050922, end: 20050922
  2. MULTIHANCE [Suspect]
     Indication: NUCLEAR MAGNETIC RESONANCE IMAGING
     Dosage: 20 ML ONCE IV
     Route: 042
     Dates: start: 20050922, end: 20050922

REACTIONS (1)
  - VOMITING [None]
